FAERS Safety Report 9820225 (Version 1)
Quarter: 2014Q1

REPORT INFORMATION
  Report Type: Spontaneous
  Country: US (occurrence: US)
  Receive Date: 20140116
  Receipt Date: 20140116
  Transmission Date: 20141002
  Serious: No
  Sender: FDA-Public Use
  Company Number: US-BAYER-2014-007611

PATIENT
  Age: 77 Year
  Sex: Female

DRUGS (2)
  1. ALEVE CAPLET [Suspect]
     Dosage: 1 DF, PRN
     Route: 048
     Dates: start: 2012, end: 20140115
  2. MULTIVITAMIN [Concomitant]

REACTIONS (1)
  - Feeling jittery [Recovered/Resolved]
